FAERS Safety Report 14005151 (Version 4)
Quarter: 2019Q4

REPORT INFORMATION
  Report Type: Spontaneous
  Country: US (occurrence: US)
  Receive Date: 20170922
  Receipt Date: 20191227
  Transmission Date: 20200122
  Serious: Yes (Other)
  Sender: FDA-Public Use
  Company Number: US-ELI_LILLY_AND_COMPANY-US201709004275

PATIENT
  Age: 69 Year
  Sex: Male

DRUGS (5)
  1. CIALIS [Suspect]
     Active Substance: TADALAFIL
     Dosage: 5 MG, DAILY
     Route: 065
     Dates: start: 20140131, end: 20150213
  2. LEVITRA [Concomitant]
     Active Substance: VARDENAFIL HYDROCHLORIDE
     Indication: ERECTILE DYSFUNCTION
     Dosage: 20 MG, 2/W
     Route: 065
     Dates: start: 20090126, end: 20090202
  3. VIAGRA [Suspect]
     Active Substance: SILDENAFIL CITRATE
     Indication: ERECTILE DYSFUNCTION
     Dosage: 100 MG, 2/W
     Route: 065
     Dates: start: 20070919, end: 20110608
  4. CIALIS [Suspect]
     Active Substance: TADALAFIL
     Indication: ERECTILE DYSFUNCTION
     Dosage: 20 MG, 2/W
     Route: 065
     Dates: start: 20080520, end: 20081229
  5. QUINAPRIL. [Concomitant]
     Active Substance: QUINAPRIL
     Indication: HYPERTENSION
     Dosage: UNK UNK, UNKNOWN
     Route: 065

REACTIONS (4)
  - Brain cancer metastatic [Unknown]
  - Metastatic malignant melanoma [Unknown]
  - Malignant melanoma in situ [Unknown]
  - Post procedural erythema [Recovered/Resolved]

NARRATIVE: CASE EVENT DATE: 2013
